FAERS Safety Report 16134045 (Version 1)
Quarter: 2019Q1

REPORT INFORMATION
  Report Type: Spontaneous
  Country: US (occurrence: US)
  Receive Date: 20190329
  Receipt Date: 20190329
  Transmission Date: 20190418
  Serious: Yes (Other)
  Sender: FDA-Public Use
  Company Number: US-BAYER-2019-058582

PATIENT
  Age: 67 Year
  Sex: Female
  Weight: 87.09 kg

DRUGS (4)
  1. ALEVE [Suspect]
     Active Substance: NAPROXEN SODIUM
     Indication: PAIN
     Dosage: 500 MG, PRN
  2. SIVEXTRO [Concomitant]
     Active Substance: TEDIZOLID PHOSPHATE
     Dosage: 200 MG, QD
     Route: 048
     Dates: start: 20190227, end: 20190308
  3. LEVOTHYROXINE. [Concomitant]
     Active Substance: LEVOTHYROXINE
     Indication: THYROID CANCER
     Dosage: 150 MCG/24HR, QD
     Dates: start: 2008
  4. ZYVOX [Concomitant]
     Active Substance: LINEZOLID
     Indication: CYSTITIS
     Dosage: 600 MG, TID
     Dates: start: 20190317, end: 20190318

REACTIONS (18)
  - Contusion [None]
  - Abdominal pain upper [Not Recovered/Not Resolved]
  - Dyspnoea [None]
  - Paraesthesia [None]
  - Swollen tongue [None]
  - Dizziness [Not Recovered/Not Resolved]
  - Headache [None]
  - Lip blister [Recovered/Resolved]
  - Pharyngeal oedema [Not Recovered/Not Resolved]
  - Head discomfort [None]
  - Lip blister [Not Recovered/Not Resolved]
  - Vision blurred [Not Recovered/Not Resolved]
  - Diarrhoea [None]
  - Nausea [None]
  - Dizziness [None]
  - Migraine [Recovered/Resolved]
  - Tongue blistering [Not Recovered/Not Resolved]
  - Balance disorder [None]

NARRATIVE: CASE EVENT DATE: 20190317
